FAERS Safety Report 9790667 (Version 1)
Quarter: 2013Q4

REPORT INFORMATION
  Report Type: Spontaneous
  Country: FR (occurrence: FR)
  Receive Date: 20131231
  Receipt Date: 20131231
  Transmission Date: 20140711
  Serious: Yes (Life-Threatening, Hospitalization)
  Sender: FDA-Public Use
  Company Number: FR-BRISTOL-MYERS SQUIBB COMPANY-19932433

PATIENT
  Age: 71 Year
  Sex: Female

DRUGS (9)
  1. COUMADIN TABS 2 MG [Suspect]
     Indication: ARRHYTHMIA
     Dosage: INTRRUPTED ON 14OCT2013 AND RESTARTED ON 21-OCT-2013
     Route: 048
     Dates: start: 2003
  2. CLAMOXYL [Interacting]
     Dates: start: 20131010, end: 20131031
  3. PYOSTACINE [Concomitant]
  4. PERINDOPRIL [Concomitant]
     Route: 048
  5. INSPRA [Concomitant]
     Dosage: 1 DF=25 NOS
  6. FUROSEMIDE [Concomitant]
     Dosage: 2.5 TABLETS PER DAY
  7. BISOPROLOL FUMARATE [Concomitant]
  8. SERESTA [Concomitant]
     Dosage: 1 DF= 50 UNIT NOS
  9. CARBIMAZOLE [Concomitant]
     Dates: end: 201310

REACTIONS (5)
  - International normalised ratio increased [Recovered/Resolved]
  - Upper gastrointestinal haemorrhage [Recovered/Resolved]
  - Shock haemorrhagic [Recovered/Resolved]
  - Overdose [Unknown]
  - Drug interaction [Unknown]
